FAERS Safety Report 7103150-4 (Version None)
Quarter: 2010Q4

REPORT INFORMATION
  Report Type: 
  Country: None (occurrence: None)
  Receive Date: 20101115
  Receipt Date: 20080520
  Transmission Date: 20110411
  Serious: No
  Sender: FDA-Public Use
  Company Number: US-KINGPHARMUSA00001-K200800585

PATIENT
  Sex: Female

DRUGS (3)
  1. AVINZA [Suspect]
     Dosage: 240 MG, QD
     Route: 048
  2. AVINZA [Suspect]
     Dosage: 180 MG, QD
  3. NEURONTIN [Concomitant]

REACTIONS (1)
  - OEDEMA PERIPHERAL [None]
